FAERS Safety Report 4380682-3 (Version None)
Quarter: 2004Q2

REPORT INFORMATION
  Report Type: 
  Country: None (occurrence: None)
  Receive Date: 20040618
  Receipt Date: 20040615
  Transmission Date: 20050107
  Serious: Yes (Hospitalization)
  Sender: FDA-Public Use
  Company Number: AU-BRISTOL-MYERS SQUIBB COMPANY-12615043

PATIENT
  Age: 45 Year
  Sex: Male

DRUGS (9)
  1. IFOSFAMIDE [Suspect]
     Indication: LYMPHOMA
     Dosage: THERAPY FROM 02-MAR-2004 TO 05-MAY-2004
     Dates: start: 20040302, end: 20040302
  2. ETOPOSIDE [Suspect]
     Indication: LYMPHOMA
     Dates: start: 20040505, end: 20040505
  3. GEMZAR [Suspect]
     Indication: LYMPHOMA
     Dosage: THERAPY FROM 02-MAR-2004 TO 05-MAY-2004
     Route: 042
     Dates: start: 20040302, end: 20040302
  4. VINORELBINE TARTRATE [Suspect]
     Indication: LYMPHOMA
     Dosage: THERAPY FROM 02-MAR-2004 TO 05-MAY-2004
     Dates: start: 20040302, end: 20040302
  5. PEGFILGRASTIM [Suspect]
     Indication: LYMPHOMA
     Dosage: THERAPY FROM 02-MAR-2004 TO 10-MAR-2004
     Dates: start: 20040310, end: 20040310
  6. CYTARABINE [Suspect]
     Indication: LYMPHOMA
     Dosage: X 2 DAYS
     Dates: start: 20040505
  7. PREDNISOLONE [Concomitant]
     Route: 042
  8. LOSEC [Concomitant]
  9. NAPROXEN [Concomitant]

REACTIONS (5)
  - CELLULITIS [None]
  - EPISTAXIS [None]
  - FEBRILE NEUTROPENIA [None]
  - SEPSIS [None]
  - SYNCOPE [None]
